FAERS Safety Report 8963885 (Version 1)
Quarter: 2012Q4

REPORT INFORMATION
  Report Type: 
  Country: US (occurrence: US)
  Receive Date: 20121214
  Receipt Date: 20121214
  Transmission Date: 20130627
  Serious: Yes (Other)
  Sender: FDA-Public Use
  Company Number: US-PFIZER INC-2012313444

PATIENT
  Age: 60 Year
  Sex: Female
  Weight: 79.37 kg

DRUGS (7)
  1. EFFEXOR XR [Suspect]
     Indication: MAJOR DEPRESSION
     Dosage: 75 mg, 2x/day
     Route: 048
     Dates: start: 1996, end: 2011
  2. EFFEXOR XR [Suspect]
     Indication: ANXIETY
     Dosage: 2 DF, daily
     Route: 048
     Dates: start: 2011, end: 2012
  3. EFFEXOR XR [Suspect]
     Dosage: 1 DF, daily
     Route: 048
     Dates: start: 2012
  4. EFFEXOR [Suspect]
     Indication: MAJOR DEPRESSION
     Dosage: 75 mg, 2x/day
     Route: 048
     Dates: start: 2011, end: 2011
  5. EFFEXOR [Suspect]
     Indication: ANXIETY
  6. FROVA [Concomitant]
     Indication: MIGRAINE
     Dosage: UNK, as needed
  7. FLONASE [Concomitant]
     Indication: ALLERGY
     Dosage: alternate day or once in every three days

REACTIONS (6)
  - Suicidal ideation [Unknown]
  - Gastrointestinal disorder [Unknown]
  - Tinnitus [Unknown]
  - Drug ineffective [Unknown]
  - Malabsorption [Unknown]
  - Intentional drug misuse [Unknown]
